FAERS Safety Report 19794529 (Version 1)
Quarter: 2021Q3

REPORT INFORMATION
  Report Type: Spontaneous
  Country: NL (occurrence: NL)
  Receive Date: 20210906
  Receipt Date: 20210906
  Transmission Date: 20211014
  Serious: Yes (Other)
  Sender: FDA-Public Use
  Company Number: NL-LUPIN PHARMACEUTICALS INC.-2021-16564

PATIENT
  Age: 33 Year
  Sex: Male

DRUGS (4)
  1. DOXYCYCLINE. [Concomitant]
     Active Substance: DOXYCYCLINE
     Indication: ENDOCARDITIS Q FEVER
     Dosage: UNK
     Route: 065
  2. HYDROXYCHLOROQUINE [Suspect]
     Active Substance: HYDROXYCHLOROQUINE
     Indication: ENDOCARDITIS Q FEVER
     Dosage: UNK
     Route: 065
  3. RIFAMPIN. [Suspect]
     Active Substance: RIFAMPIN
     Indication: ENDOCARDITIS Q FEVER
     Dosage: UNK
     Route: 065
  4. CEFTRIAXONE. [Concomitant]
     Active Substance: CEFTRIAXONE
     Indication: ENDOCARDITIS Q FEVER
     Dosage: UNK
     Route: 065

REACTIONS (2)
  - Acute hepatic failure [Unknown]
  - Nausea [Unknown]
